FAERS Safety Report 5572991-7 (Version None)
Quarter: 2007Q4

REPORT INFORMATION
  Report Type: 
  Country: None (occurrence: None)
  Receive Date: 20071220
  Receipt Date: 20071204
  Transmission Date: 20080405
  Serious: Yes (Disabling)
  Sender: FDA-Public Use
  Company Number: ENTC2007-0335

PATIENT
  Age: 75 Year
  Sex: Male

DRUGS (1)
  1. STALEVO 100 [Suspect]
     Dosage: 400 MG (100 MG, 4 IN 1 D); 600 MG (150 MG, 4 IN 1 D); 400 MG (100 MG, 4 IN 1 D)

REACTIONS (4)
  - BACTERIAL FOOD POISONING [None]
  - CAMPYLOBACTER INTESTINAL INFECTION [None]
  - FREEZING PHENOMENON [None]
  - INCONTINENCE [None]
